FAERS Safety Report 6847753-0 (Version None)
Quarter: 2010Q3

REPORT INFORMATION
  Report Type: 
  Country: None (occurrence: None)
  Receive Date: 20100716
  Receipt Date: 20100712
  Transmission Date: 20110219
  Serious: Yes (Life-Threatening, Hospitalization, Other)
  Sender: FDA-Public Use
  Company Number: DE-NAPPMUNDI-DEU-2010-0006405

PATIENT
  Age: 27 Year
  Sex: Male
  Weight: 62 kg

DRUGS (5)
  1. MORPHINE SULFATE [Suspect]
     Indication: POLYSUBSTANCE DEPENDENCE
     Dosage: 300 MG, SINGLE
     Route: 048
     Dates: start: 20100403, end: 20100403
  2. ROHYPNOL [Suspect]
     Indication: POLYSUBSTANCE DEPENDENCE
     Dosage: 3 MG, DAILY
     Route: 048
     Dates: start: 20100403, end: 20100403
  3. ROHYPNOL [Suspect]
     Dosage: 1 MG, MONTHLY
     Route: 048
     Dates: start: 20100101, end: 20100402
  4. DOXEPIN HCL [Concomitant]
  5. IBUPROFEN [Concomitant]

REACTIONS (4)
  - COMPARTMENT SYNDROME [None]
  - DRUG ABUSE [None]
  - RENAL FAILURE ACUTE [None]
  - RHABDOMYOLYSIS [None]
